FAERS Safety Report 7486959 (Version 4)
Quarter: 2013Q4

REPORT INFORMATION
  Report Type: Spontaneous
  Country: JP (occurrence: JP)
  Receive Date: 20100719
  Receipt Date: 20131127
  Transmission Date: 20140711
  Serious: Yes (Hospitalization)
  Sender: FDA-Public Use
  Company Number: JP-SANOFI-AVENTIS-2010SA041203

PATIENT
  Age: 79 Year
  Sex: Female
  Weight: 48.2 kg

DRUGS (10)
  1. MYSLEE [Suspect]
     Indication: INSOMNIA
     Route: 048
     Dates: start: 20080711, end: 20090210
  2. NOVORAPID [Concomitant]
     Indication: TYPE 1 DIABETES MELLITUS
     Route: 065
  3. COROHERSER [Concomitant]
     Indication: ANGINA PECTORIS
     Route: 065
  4. BISOPROLOL FUMARATE [Concomitant]
     Indication: CARDIAC FAILURE
     Route: 065
  5. LASIX [Concomitant]
     Indication: CARDIAC FAILURE
     Route: 048
  6. BAYASPIRIN [Concomitant]
     Indication: ANGINA PECTORIS
     Route: 065
  7. WARFARIN POTASSIUM [Concomitant]
     Indication: ANGINA PECTORIS
     Route: 065
  8. TEPRENONE [Concomitant]
     Indication: GASTRITIS
     Route: 048
  9. ALFAROL [Concomitant]
     Indication: OSTEOPOROSIS
     Route: 048
  10. IMIDAFENACIN [Concomitant]
     Indication: HYPERTONIC BLADDER
     Route: 065

REACTIONS (3)
  - Sleep-related eating disorder [Recovered/Resolved]
  - Blood glucose increased [Unknown]
  - Amnesia [Unknown]
